FAERS Safety Report 10434206 (Version 1)
Quarter: 2014Q3

REPORT INFORMATION
  Report Type: Report from Study
  Country: BR (occurrence: BR)
  Receive Date: 20140905
  Receipt Date: 20140905
  Transmission Date: 20150326
  Serious: Yes (Hospitalization)
  Sender: FDA-Public Use
  Company Number: BR-BRISTOL-MYERS SQUIBB COMPANY-21343462

PATIENT
  Age: 55 Year
  Sex: Male
  Weight: 72 kg

DRUGS (6)
  1. LOSARTAN [Concomitant]
     Active Substance: LOSARTAN
     Indication: HYPERTENSION
     Route: 048
     Dates: start: 2011
  2. METFORMIN HCL XR TABS 500 MG [Suspect]
     Active Substance: METFORMIN HYDROCHLORIDE
     Indication: TYPE 2 DIABETES MELLITUS
     Route: 048
     Dates: start: 2013
  3. PLACEBO [Suspect]
     Active Substance: UNSPECIFIED INGREDIENT
     Indication: TYPE 2 DIABETES MELLITUS
     Dosage: LAST DOSE:30JUL2014
     Dates: start: 20140618
  4. NPH INSULIN [Concomitant]
     Active Substance: INSULIN BEEF
     Indication: TYPE 2 DIABETES MELLITUS
     Dosage: INJECTABLE SOLUTION
     Route: 058
     Dates: start: 2011
  5. DIPYRONE [Concomitant]
     Active Substance: DIPYRONE
     Indication: ARTHRALGIA
     Route: 048
     Dates: start: 2011
  6. BYDUREON [Suspect]
     Active Substance: EXENATIDE
     Indication: TYPE 2 DIABETES MELLITUS
     Dosage: LAST DOSE:30JUL2014
     Dates: start: 20140618

REACTIONS (3)
  - Gastritis erosive [Recovering/Resolving]
  - Gastrointestinal haemorrhage [None]
  - Erosive oesophagitis [None]

NARRATIVE: CASE EVENT DATE: 20140801
